FAERS Safety Report 9046876 (Version 1)
Quarter: 2013Q1

REPORT INFORMATION
  Report Type: Spontaneous
  Country: US (occurrence: None)
  Receive Date: 20130129
  Receipt Date: 20130129
  Transmission Date: 20140127
  Serious: Yes (Hospitalization)
  Sender: FDA-Public Use
  Company Number: None

PATIENT
  Age: 56 Year
  Sex: Female
  Weight: 104.33 kg

DRUGS (1)
  1. VALACYCLOVIR [Suspect]
     Indication: ORAL HERPES
     Dosage: 2 CAPLETS     NOW AND THEN EVERY 12 HOURS AS NEEDED     PO
     Route: 048
     Dates: start: 20120120, end: 20120120

REACTIONS (9)
  - Pain [None]
  - Mobility decreased [None]
  - Headache [None]
  - Pyrexia [None]
  - Musculoskeletal stiffness [None]
  - Feeling abnormal [None]
  - Foreign body sensation in eyes [None]
  - Viral infection [None]
  - Ophthalmic herpes simplex [None]
